FAERS Safety Report 5317162-4 (Version None)
Quarter: 2007Q2

REPORT INFORMATION
  Report Type: 
  Country: None (occurrence: None)
  Receive Date: 20070504
  Receipt Date: 20070424
  Transmission Date: 20071010
  Serious: Yes (Hospitalization)
  Sender: FDA-Public Use
  Company Number: IT-PFIZER INC-2006154457

PATIENT
  Sex: Female
  Weight: 79 kg

DRUGS (6)
  1. SU-011,248 [Suspect]
     Indication: RENAL CELL CARCINOMA STAGE UNSPECIFIED
     Route: 048
  2. TRIATEC [Concomitant]
     Route: 048
  3. EUTIROX [Concomitant]
     Route: 048
     Dates: start: 20020101
  4. CALCITRIOL [Concomitant]
     Route: 048
     Dates: start: 20020101
  5. ALLOPURINOL [Concomitant]
     Route: 048
     Dates: start: 20030101
  6. SEACOR [Concomitant]
     Route: 048

REACTIONS (1)
  - ATRIOVENTRICULAR BLOCK [None]
